FAERS Safety Report 4348174-5 (Version None)
Quarter: 2004Q1

REPORT INFORMATION
  Report Type: 
  Country: None (occurrence: None)
  Receive Date: 20040325
  Receipt Date: 20040212
  Transmission Date: 20041129
  Serious: No
  Sender: FDA-Public Use
  Company Number: USA040259137

PATIENT
  Age: 86 Year
  Sex: Female
  Weight: 86 kg

DRUGS (5)
  1. FORTEO [Suspect]
     Indication: OSTEOPOROSIS
     Dates: start: 20021201
  2. SYNTHROID [Concomitant]
  3. MULTIVITAMIN [Concomitant]
  4. GLUCOSAMINE [Concomitant]
  5. OSCAL (CALCIUM CARBONATE) [Concomitant]

REACTIONS (3)
  - DRY MOUTH [None]
  - DYSPNOEA [None]
  - MUCOSAL DRYNESS [None]
